APPROVED DRUG PRODUCT: ZOLADEX
Active Ingredient: GOSERELIN ACETATE
Strength: EQ 3.6MG BASE
Dosage Form/Route: IMPLANT;IMPLANTATION
Application: N019726 | Product #001
Applicant: TERSERA THERAPEUTICS LLC
Approved: Dec 29, 1989 | RLD: Yes | RS: Yes | Type: RX